FAERS Safety Report 15339450 (Version 1)
Quarter: 2018Q3

REPORT INFORMATION
  Report Type: Report from Study
  Country: US (occurrence: US)
  Receive Date: 20180831
  Receipt Date: 20180831
  Transmission Date: 20181010
  Serious: Yes (Hospitalization, Other)
  Sender: FDA-Public Use
  Company Number: US-GILEAD-2018-0358897

PATIENT
  Age: 54 Year
  Sex: Female

DRUGS (2)
  1. LEDIPASVIR/SOFOSBUVIR [Suspect]
     Active Substance: LEDIPASVIR\SOFOSBUVIR
     Indication: CHRONIC HEPATITIS C
     Dosage: 1 DF, QD
     Route: 048
     Dates: start: 20180523, end: 20180820
  2. LIPOZENE [Concomitant]
     Active Substance: KONJAC MANNAN
     Dosage: UNKNOWN

REACTIONS (5)
  - Intentional dose omission [Recovered/Resolved]
  - Bacterial infection [Recovering/Resolving]
  - Coma [Recovering/Resolving]
  - Adverse drug reaction [Recovering/Resolving]
  - Deformity thorax [Not Recovered/Not Resolved]

NARRATIVE: CASE EVENT DATE: 201806
